FAERS Safety Report 7548645-4 (Version None)
Quarter: 2011Q2

REPORT INFORMATION
  Report Type: 
  Country: None (occurrence: None)
  Receive Date: 20110615
  Receipt Date: 20110607
  Transmission Date: 20111010
  Serious: Yes (Hospitalization, Other)
  Sender: FDA-Public Use
  Company Number: BR-SANOFI-AVENTIS-2011SA036157

PATIENT
  Sex: Male

DRUGS (10)
  1. PANTOPRAZOLE [Concomitant]
     Route: 048
     Dates: start: 20110602
  2. MONOCORDIL [Concomitant]
     Route: 048
     Dates: start: 20110602
  3. ATENOLOL [Concomitant]
     Indication: BLOOD PRESSURE
     Route: 048
     Dates: start: 20110602
  4. LANTUS [Suspect]
     Indication: TYPE 2 DIABETES MELLITUS
     Route: 058
  5. ANCORON [Concomitant]
     Route: 048
     Dates: start: 20110602
  6. SIMVASTATIN [Concomitant]
     Route: 048
     Dates: start: 20110602
  7. AUTOPEN 24 [Suspect]
     Indication: DEVICE THERAPY
  8. BENERVA [Concomitant]
     Indication: VITAMIN SUPPLEMENTATION
     Route: 048
     Dates: start: 20110602
  9. ASPIRIN [Concomitant]
     Route: 048
     Dates: start: 20110602
  10. ENDOFOLIN [Concomitant]
     Route: 048
     Dates: start: 20110602

REACTIONS (6)
  - FEELING ABNORMAL [None]
  - HUNGER [None]
  - HYPOGLYCAEMIA [None]
  - HYPERGLYCAEMIA [None]
  - CORONARY ARTERY OCCLUSION [None]
  - FATIGUE [None]
